FAERS Safety Report 9905542 (Version 2)
Quarter: 2014Q1

REPORT INFORMATION
  Report Type: Spontaneous
  Country: US (occurrence: US)
  Receive Date: 20140218
  Receipt Date: 20140218
  Transmission Date: 20141002
  Serious: No
  Sender: FDA-Public Use
  Company Number: US-GILEAD-2012-0048843

PATIENT
  Sex: Female
  Weight: 65.31 kg

DRUGS (10)
  1. LETAIRIS [Suspect]
     Indication: PULMONARY HYPERTENSION
     Dosage: 5 MG, UNK
     Route: 048
     Dates: start: 20110826
  2. ADCIRCA [Concomitant]
     Indication: PULMONARY HYPERTENSION
  3. FISH OIL [Concomitant]
  4. POTASSIUM CHLORIDE [Concomitant]
  5. SPIRIVA [Concomitant]
  6. LASIX                              /00032601/ [Concomitant]
  7. OXYGEN [Concomitant]
  8. VENTOLIN                           /00139501/ [Concomitant]
  9. SYMBICORT [Concomitant]
  10. CALCIUM + D DUETTO [Concomitant]

REACTIONS (1)
  - Lower respiratory tract infection [Unknown]
